FAERS Safety Report 25230872 (Version 1)
Quarter: 2025Q2

REPORT INFORMATION
  Report Type: Spontaneous
  Country: US (occurrence: US)
  Receive Date: 20250423
  Receipt Date: 20250423
  Transmission Date: 20250716
  Serious: No
  Sender: COREPHARMA LLC
  Company Number: US-CorePharma LLC-2175449

PATIENT

DRUGS (1)
  1. LISINOPRIL [Suspect]
     Active Substance: LISINOPRIL
     Indication: Product used for unknown indication

REACTIONS (8)
  - Illness [Not Recovered/Not Resolved]
  - Muscle atrophy [Unknown]
  - Balance disorder [Unknown]
  - Dizziness [Unknown]
  - Nervousness [Unknown]
  - Blood pressure increased [Unknown]
  - Asthenia [Unknown]
  - Cough [Unknown]
